FAERS Safety Report 8950782 (Version 3)
Quarter: 2014Q2

REPORT INFORMATION
  Report Type: Report from Study
  Country: GB (occurrence: GB)
  Receive Date: 20121207
  Receipt Date: 20140407
  Transmission Date: 20141212
  Serious: Yes (Death, Other)
  Sender: FDA-Public Use
  Company Number: GB-AMGEN-GBRCT2012076978

PATIENT
  Age: 64 Year
  Sex: Male
  Weight: 89 kg

DRUGS (3)
  1. ETANERCEPT [Suspect]
     Indication: RHEUMATOID ARTHRITIS
     Dosage: 25 MG, 2 TIMES/WK
     Route: 065
     Dates: start: 20050727
  2. HYDROXYCHLOROQUINE [Concomitant]
     Dosage: UNK
  3. SULPHASALAZINE [Concomitant]
     Dosage: UNK

REACTIONS (1)
  - Renal cancer [Fatal]
